FAERS Safety Report 12983504 (Version 10)
Quarter: 2018Q3

REPORT INFORMATION
  Report Type: Spontaneous
  Country: US (occurrence: US)
  Receive Date: 20161129
  Receipt Date: 20180803
  Transmission Date: 20181010
  Serious: Yes (Other)
  Sender: FDA-Public Use
  Company Number: US-PFIZER INC-2016543627

PATIENT
  Age: 83 Year
  Sex: Female
  Weight: 69.84 kg

DRUGS (7)
  1. ANASTROZOLE. [Concomitant]
     Active Substance: ANASTROZOLE
     Dosage: UNK
  2. IBRANCE [Suspect]
     Active Substance: PALBOCICLIB
     Dosage: 100 MG, CYCLIC (DAYS 1 TO 21; EVERY 28 DAYS)
     Route: 048
     Dates: start: 2016, end: 2016
  3. IBRANCE [Suspect]
     Active Substance: PALBOCICLIB
     Dosage: 100 MG, CYCLIC (DAYS 1 TO 21; EVERY 28 DAYS)
     Route: 048
     Dates: start: 2016, end: 2016
  4. IBRANCE [Suspect]
     Active Substance: PALBOCICLIB
     Indication: BREAST CANCER METASTATIC
     Dosage: 125 MG, CYCLIC (DAYS 1 TO 21; EVERY 28 DAYS)
     Route: 048
     Dates: start: 20161102, end: 2016
  5. IBRANCE [Suspect]
     Active Substance: PALBOCICLIB
     Dosage: 100 MG, CYCLIC (DAYS 1 TO 21; EVERY 28 DAYS)
     Route: 048
     Dates: start: 20161214, end: 20170726
  6. IBRANCE [Suspect]
     Active Substance: PALBOCICLIB
     Dosage: 75 MG, CYCLIC (DAYS 1 TO 21; EVERY 28 DAYS)
     Route: 048
     Dates: start: 2017
  7. IBRANCE [Suspect]
     Active Substance: PALBOCICLIB
     Dosage: 125 MG, CYCLIC (DAYS 1 TO 21; EVERY 28 DAYS)
     Route: 048
     Dates: start: 2016, end: 2016

REACTIONS (21)
  - Nausea [Unknown]
  - Laboratory test abnormal [Unknown]
  - Arthralgia [Unknown]
  - Full blood count decreased [Unknown]
  - Cytopenia [Unknown]
  - Pruritus [Unknown]
  - Discomfort [Unknown]
  - Pain in extremity [Unknown]
  - Drug dose omission [Unknown]
  - Erythema [Unknown]
  - Pain [Unknown]
  - Peripheral swelling [Unknown]
  - Product use in unapproved indication [Unknown]
  - Stomatitis [Unknown]
  - Weight decreased [Recovering/Resolving]
  - Dysstasia [Unknown]
  - Anaemia [Unknown]
  - Skin exfoliation [Unknown]
  - Burning sensation [Unknown]
  - Dry skin [Unknown]
  - Skin haemorrhage [Unknown]

NARRATIVE: CASE EVENT DATE: 2016
